FAERS Safety Report 4894816-5 (Version None)
Quarter: 2006Q1

REPORT INFORMATION
  Report Type: 
  Country: None (occurrence: None)
  Receive Date: 20060130
  Receipt Date: 20040509
  Transmission Date: 20060701
  Serious: Yes (Death)
  Sender: FDA-Public Use
  Company Number: 200414966GDDC

PATIENT
  Age: 71 Year
  Sex: Female
  Weight: 70 kg

DRUGS (7)
  1. ENOXAPARIN SODIUM [Suspect]
     Indication: MYOCARDIAL INFARCTION
     Dosage: DOSE: ENOXAPARIN BOLUS 30 MG
     Route: 040
     Dates: end: 20040503
  2. ENOXAPARIN SODIUM [Suspect]
     Dosage: DOSE: PLACEBO BOLUS 4000 UNITS; DOSE UNIT: UNITS
     Route: 040
     Dates: end: 20040503
  3. ENOXAPARIN SODIUM [Suspect]
     Dosage: DOSE: ENOXAPARIN
     Route: 058
  4. ENOXAPARIN SODIUM [Suspect]
     Dosage: DOSE: PLACEBO 840 U; FREQUENCY: CONTINUOUS; DOSE UNIT: UNITS
     Route: 041
  5. ASPIRIN [Suspect]
     Indication: MYOCARDIAL INFARCTION
     Route: 048
     Dates: start: 20040503, end: 20040503
  6. ACTIVASE [Suspect]
     Indication: MYOCARDIAL INFARCTION
     Route: 042
     Dates: start: 20040503, end: 20040503
  7. NITROGLYCERIN [Concomitant]
     Indication: MYOCARDIAL INFARCTION
     Dosage: DOSE: UNK
     Dates: start: 20040503, end: 20040503

REACTIONS (1)
  - ELECTROMECHANICAL DISSOCIATION [None]
